FAERS Safety Report 15864582 (Version 6)
Quarter: 2019Q2

REPORT INFORMATION
  Report Type: Spontaneous
  Country: US (occurrence: US)
  Receive Date: 20190124
  Receipt Date: 20190404
  Transmission Date: 20190711
  Serious: Yes (Hospitalization)
  Sender: FDA-Public Use
  Company Number: US-VERTEX PHARMACEUTICALS-2019-000588

PATIENT
  Age: 36 Year
  Sex: Female
  Weight: 46 kg

DRUGS (26)
  1. ORKAMBI [Suspect]
     Active Substance: IVACAFTOR\LUMACAFTOR
     Indication: CYSTIC FIBROSIS
     Dosage: 2 DOSAGE FORM, BID
     Route: 048
     Dates: start: 20151016
  2. BENADRYL [Suspect]
     Active Substance: DIPHENHYDRAMINE HYDROCHLORIDE
     Indication: PRODUCT USED FOR UNKNOWN INDICATION
     Route: 042
  3. AZITHROMYCIN ANHYDROUS. [Concomitant]
     Active Substance: AZITHROMYCIN ANHYDROUS
     Dosage: 250 MG TABLET
  4. GLYCERIN                           /00200601/ [Concomitant]
     Active Substance: GLYCERIN
     Dosage: PEDIATRIC SUPPOSITORY
     Route: 054
  5. AQUADEKS                           /07679501/ [Concomitant]
     Active Substance: MINERALS\VITAMINS
     Dosage: 100-150 MCG
  6. PERTZYE [Concomitant]
     Active Substance: PANCRELIPASE AMYLASE\PANCRELIPASE LIPASE\PANCRELIPASE PROTEASE
     Dosage: 16K-57.5K UNIT
  7. MINERAL OIL. [Concomitant]
     Active Substance: MINERAL OIL
  8. ZOFRAN [Concomitant]
     Active Substance: ONDANSETRON HYDROCHLORIDE
  9. VITAMIN K1 [Concomitant]
     Active Substance: PHYTONADIONE
     Dosage: 500 MICROGRAM
     Route: 060
  10. ZOSYN [Concomitant]
     Active Substance: PIPERACILLIN SODIUM\TAZOBACTAM SODIUM
     Dosage: 2.25 GRAM VIAL
  11. PEPPERMINT                         /01649801/ [Concomitant]
  12. FENNEL                             /01234601/ [Concomitant]
  13. CLONAZEPAM. [Suspect]
     Active Substance: CLONAZEPAM
     Indication: PANIC ATTACK
     Dosage: 0.5 MG TABLET
     Route: 065
  14. GOLYTELY [Concomitant]
     Active Substance: POLYETHYLENE GLYCOL 3350\POTASSIUM CHLORIDE\SODIUM BICARBONATE\SODIUM CHLORIDE\SODIUM SULFATE ANHYDROUS
     Dosage: 227.1 GRAM POWDER PACK
  15. PULMOZYME [Concomitant]
     Active Substance: DORNASE ALFA
     Dosage: 2.5 MG, QD
     Route: 055
  16. TYGACIL [Concomitant]
     Active Substance: TIGECYCLINE
     Dosage: 50 MG VIAL
  17. MIRTAZEPINE TEVA [Concomitant]
     Active Substance: MIRTAZAPINE
     Dosage: 15 MG
  18. VITAMIN D3 [Concomitant]
     Active Substance: CHOLECALCIFEROL
     Dosage: 10,000 UNIT
  19. PHENERGAN [Concomitant]
     Active Substance: PROMETHAZINE HYDROCHLORIDE
  20. IMIPENEM AND CILASTATIN SODIUM [Concomitant]
     Active Substance: CILASTATIN SODIUM\IMIPENEM
  21. GABAPENTIN. [Concomitant]
     Active Substance: GABAPENTIN
     Dosage: UNK
  22. IPRATROPIUM/ALBUTEROL [Concomitant]
     Active Substance: ALBUTEROL\IPRATROPIUM
     Dosage: UNK
  23. CAYSTON [Concomitant]
     Active Substance: AZTREONAM
     Dosage: 75 MG
  24. XOPENEX [Concomitant]
     Active Substance: LEVALBUTEROL HYDROCHLORIDE
     Dosage: 0.31 MG
  25. HYPERSAL [Concomitant]
     Dosage: 3.5 % VIAL
  26. TEA TREE OIL. [Concomitant]
     Active Substance: TEA TREE OIL

REACTIONS (17)
  - Panic attack [Unknown]
  - White blood cell count abnormal [Unknown]
  - Retching [Unknown]
  - Mycobacterial infection [Unknown]
  - Feeling drunk [Unknown]
  - Weight decreased [Unknown]
  - Nausea [Unknown]
  - Respiratory syncytial virus infection [Recovered/Resolved]
  - Renal disorder [Unknown]
  - Cough [Unknown]
  - Vomiting [Unknown]
  - Pseudomonas infection [Unknown]
  - Gastrointestinal disorder [Unknown]
  - Restless legs syndrome [Unknown]
  - Respiratory rate decreased [Unknown]
  - Feeling abnormal [Unknown]
  - Vertigo [Unknown]

NARRATIVE: CASE EVENT DATE: 2019
